FAERS Safety Report 25688146 (Version 1)
Quarter: 2025Q3

REPORT INFORMATION
  Report Type: Spontaneous
  Country: US (occurrence: US)
  Receive Date: 20250818
  Receipt Date: 20250818
  Transmission Date: 20251021
  Serious: Yes (Hospitalization, Other)
  Sender: BAXTER
  Company Number: US-MLMSERVICE-20250801-PI600634-00211-1

PATIENT
  Age: 17 Year
  Sex: Male
  Weight: 70 kg

DRUGS (1)
  1. MANNITOL [Suspect]
     Active Substance: MANNITOL
     Indication: Intracranial pressure increased
     Dosage: 50 G, QID (20% SOLUTION WAS ADMINISTERED INTRAVE?NOUSLY EVERY SIX HOURS)
     Route: 042

REACTIONS (4)
  - Diabetes insipidus [Recovered/Resolved]
  - Hypernatraemia [Recovered/Resolved]
  - Polyuria [Recovered/Resolved]
  - Blood osmolarity increased [Recovered/Resolved]
